FAERS Safety Report 25667306 (Version 4)
Quarter: 2025Q3

REPORT INFORMATION
  Report Type: Spontaneous
  Country: US (occurrence: US)
  Receive Date: 20250811
  Receipt Date: 20250902
  Transmission Date: 20251021
  Serious: Yes (Other)
  Sender: ABBVIE
  Company Number: US-ABBVIE-6401537

PATIENT
  Age: 71 Year
  Sex: Female

DRUGS (2)
  1. REFRESH OPTIVE [Suspect]
     Active Substance: CARBOXYMETHYLCELLULOSE SODIUM\GLYCERIN
     Indication: Dry eye
     Route: 047
  2. REFRESH PLUS [Suspect]
     Active Substance: CARBOXYMETHYLCELLULOSE SODIUM
     Indication: Dry eye
     Route: 047

REACTIONS (7)
  - Hordeolum [Unknown]
  - Therapeutic product effect increased [Not Recovered/Not Resolved]
  - Eyelash changes [Not Recovered/Not Resolved]
  - Eye discharge [Recovered/Resolved]
  - Stress [Not Recovered/Not Resolved]
  - Sebaceous gland disorder [Unknown]
  - Product formulation issue [Not Recovered/Not Resolved]

NARRATIVE: CASE EVENT DATE: 20250101
